FAERS Safety Report 5862189-7 (Version None)
Quarter: 2008Q3

REPORT INFORMATION
  Report Type: 
  Country: None (occurrence: None)
  Receive Date: 20080828
  Receipt Date: 20080304
  Transmission Date: 20090109
  Serious: No
  Sender: FDA-Public Use
  Company Number: A0715041A

PATIENT
  Age: 55 Year
  Sex: Female

DRUGS (3)
  1. ZOVIRAX [Suspect]
     Route: 061
  2. ZOVIRAX [Suspect]
     Route: 061
  3. VAGINAL CREAM [Concomitant]

REACTIONS (2)
  - DRUG INEFFECTIVE [None]
  - PHARMACEUTICAL PRODUCT COMPLAINT [None]
